FAERS Safety Report 6170412-7 (Version None)
Quarter: 2009Q2

REPORT INFORMATION
  Report Type: 
  Country: None (occurrence: None)
  Receive Date: 20090428
  Receipt Date: 20090319
  Transmission Date: 20091009
  Serious: Yes (Other)
  Sender: FDA-Public Use
  Company Number: PHEH2009US03046

PATIENT

DRUGS (1)
  1. ZOMETA [Suspect]

REACTIONS (2)
  - INFECTION [None]
  - TOOTH LOSS [None]
